FAERS Safety Report 16416925 (Version 2)
Quarter: 2019Q4

REPORT INFORMATION
  Report Type: Spontaneous
  Country: US (occurrence: US)
  Receive Date: 20190611
  Receipt Date: 20191226
  Transmission Date: 20200122
  Serious: Yes (Other)
  Sender: FDA-Public Use
  Company Number: US-PFIZER INC-2019238525

PATIENT
  Age: 25 Year
  Sex: Female

DRUGS (1)
  1. BENADRYL [Suspect]
     Active Substance: DIPHENHYDRAMINE HYDROCHLORIDE
     Dosage: UNK
     Route: 048

REACTIONS (3)
  - Intentional overdose [Recovering/Resolving]
  - Bundle branch block [Recovering/Resolving]
  - Sinus tachycardia [Recovering/Resolving]
